FAERS Safety Report 9256041 (Version 1)
Quarter: 2013Q2

REPORT INFORMATION
  Report Type: Spontaneous
  Country: US (occurrence: US)
  Receive Date: 20130425
  Receipt Date: 20130425
  Transmission Date: 20140414
  Serious: No
  Sender: FDA-Public Use
  Company Number: US-AMGEN-USASP2012008713

PATIENT
  Age: 54 Year
  Sex: Female

DRUGS (4)
  1. NEULASTA [Suspect]
     Indication: PRODUCT USED FOR UNKNOWN INDICATION
     Dosage: UNK
  2. VELCADE [Suspect]
     Dosage: UNK
  3. DOXIL [Suspect]
     Dosage: UNK
  4. GEMCITABINE [Suspect]
     Dosage: UNK

REACTIONS (3)
  - Influenza like illness [Unknown]
  - Hypoaesthesia [Unknown]
  - Paraesthesia [Unknown]
